FAERS Safety Report 5698098-6 (Version None)
Quarter: 2008Q2

REPORT INFORMATION
  Report Type: 
  Country: None (occurrence: None)
  Receive Date: 20080408
  Receipt Date: 20080329
  Transmission Date: 20081010
  Serious: Yes (Other)
  Sender: FDA-Public Use
  Company Number: US-PFIZER INC-2007073105

PATIENT
  Sex: Female
  Weight: 56.7 kg

DRUGS (3)
  1. LIPITOR [Suspect]
     Indication: BLOOD CHOLESTEROL INCREASED
     Route: 048
  2. LEXAPRO [Concomitant]
     Dosage: DAILY DOSE:10MG-FREQ:DAILY
  3. PREDNISONE [Concomitant]
     Dosage: TEXT:10 MG TO 20 MG-FREQ:DAILY

REACTIONS (7)
  - ACTIVITIES OF DAILY LIVING IMPAIRED [None]
  - BLOOD CHOLESTEROL INCREASED [None]
  - CATARACT OPERATION [None]
  - MYALGIA [None]
  - POLYMYALGIA RHEUMATICA [None]
  - RED BLOOD CELL SEDIMENTATION RATE INCREASED [None]
  - RETINAL OPERATION [None]
